FAERS Safety Report 4822653-6 (Version None)
Quarter: 2005Q4

REPORT INFORMATION
  Report Type: 
  Country: None (occurrence: None)
  Receive Date: 20051108
  Receipt Date: 20051025
  Transmission Date: 20060501
  Serious: Yes (Hospitalization)
  Sender: FDA-Public Use
  Company Number: GB-AVENTIS-200519457GDDC

PATIENT
  Age: 37 Year
  Sex: Female

DRUGS (4)
  1. LANTUS [Suspect]
     Indication: DIABETES MELLITUS
     Route: 058
  2. OPTIPEN (INSULIN PUMP) [Suspect]
  3. NOVORAPID [Concomitant]
  4. ASPIRIN [Concomitant]

REACTIONS (2)
  - NASOPHARYNGITIS [None]
  - PNEUMONIA [None]
